FAERS Safety Report 5082416-6 (Version None)
Quarter: 2006Q3

REPORT INFORMATION
  Report Type: 
  Country: None (occurrence: None)
  Receive Date: 20060817
  Receipt Date: 20060802
  Transmission Date: 20061208
  Serious: Yes (Death, Hospitalization)
  Sender: FDA-Public Use
  Company Number: JP-JPN-A200602932

PATIENT
  Age: 50 Year
  Sex: Female

DRUGS (5)
  1. PAXIL [Suspect]
     Indication: DEPRESSION
     Dosage: 40MG PER DAY
     Route: 048
  2. ZYPREXA [Suspect]
     Dosage: 20MG PER DAY
     Route: 048
  3. RISPERDAL [Suspect]
     Dosage: .2MG PER DAY
     Route: 048
  4. SOLANAX [Suspect]
     Dosage: 2U PER DAY
     Route: 048
  5. CONSTAN [Concomitant]
     Route: 048

REACTIONS (3)
  - BRAIN DEATH [None]
  - INAPPROPRIATE ANTIDIURETIC HORMONE SECRETION [None]
  - NEUROLEPTIC MALIGNANT SYNDROME [None]
